FAERS Safety Report 10263182 (Version 2)
Quarter: 2014Q2

REPORT INFORMATION
  Report Type: Report from Study
  Country: US (occurrence: US)
  Receive Date: 20140626
  Receipt Date: 20140626
  Transmission Date: 20141212
  Serious: Yes (Other)
  Sender: FDA-Public Use
  Company Number: US-MYLANLABS-2014S1005317

PATIENT
  Age: 53 Year
  Sex: Female
  Weight: 45.27 kg

DRUGS (8)
  1. CLOZAPINE TABLETS [Suspect]
     Indication: SCHIZOPHRENIA
     Route: 048
     Dates: start: 20111230, end: 20140304
  2. CLOZAPINE TABLETS [Suspect]
     Indication: SCHIZOPHRENIA
     Route: 048
     Dates: start: 201112, end: 20140304
  3. HALDOL [Suspect]
     Dates: start: 20140210
  4. SEROQUEL [Suspect]
     Dates: start: 2014
  5. HALDOL [Concomitant]
     Dates: start: 20140210
  6. SEROQUEL /01270902/ [Concomitant]
     Dosage: XR
  7. CELEXA [Concomitant]
     Route: 048
  8. COGENTIN [Concomitant]

REACTIONS (2)
  - Granulocytopenia [Recovered/Resolved]
  - Leukopenia [Recovered/Resolved]
